FAERS Safety Report 8025410-5 (Version None)
Quarter: 2011Q4

REPORT INFORMATION
  Report Type: 
  Country: None (occurrence: None)
  Receive Date: 20111130
  Receipt Date: 20110920
  Transmission Date: 20120403
  Serious: Yes (Other)
  Sender: FDA-Public Use
  Company Number: 2009004634

PATIENT
  Age: 30 Year
  Sex: Female
  Weight: 64.8644 kg

DRUGS (1)
  1. TRISENOX [Suspect]
     Indication: ACUTE PROMYELOCYTIC LEUKAEMIA
     Dosage: 9.3 MG (9.3 MG,1 IN 1 D),INTRAVENOUS DRIP
     Route: 041
     Dates: start: 20090323

REACTIONS (2)
  - NAUSEA [None]
  - NEUTROPENIA [None]
